FAERS Safety Report 13851673 (Version 2)
Quarter: 2017Q3

REPORT INFORMATION
  Report Type: Spontaneous
  Country: DE (occurrence: DE)
  Receive Date: 20170809
  Receipt Date: 20170905
  Transmission Date: 20171127
  Serious: Yes (Hospitalization, Other)
  Sender: FDA-Public Use
  Company Number: DE-ASTRAZENECA-2017SE80608

PATIENT
  Age: 26571 Day
  Sex: Female
  Weight: 64 kg

DRUGS (8)
  1. LERCANIDIPINE [Concomitant]
     Active Substance: LERCANIDIPINE
     Indication: HYPERTENSION
     Dosage: 10, SINCE TEN YEARS
  2. CRESTOR [Suspect]
     Active Substance: ROSUVASTATIN CALCIUM
     Route: 048
  3. CLOPIDOGREL [Concomitant]
     Active Substance: CLOPIDOGREL BISULFATE
     Indication: STENOSIS
     Dosage: 75, SINCE 3/4 OF A YEARS
  4. THYRONAJOD [Concomitant]
     Active Substance: LEVOTHYROXINE SODIUM\POTASSIUM IODIDE
     Indication: THYROID DISORDER
     Dosage: 75, SINCE TWELVE YEARS
  5. MEDIUM-CHAIN TRIGLYCERIDES [Concomitant]
     Active Substance: MEDIUM-CHAIN TRIGLYCERIDES
     Indication: HYPERTENSION
     Dosage: 12.5, OVER TEN YEARS OF THERAPY
  6. ESOMEPRAZOLE [Concomitant]
     Active Substance: ESOMEPRAZOLE
     Indication: GASTROOESOPHAGEAL REFLUX DISEASE
     Dosage: 20, SINCE TEN YEARS
  7. ASPIRIN. [Concomitant]
     Active Substance: ASPIRIN
     Indication: BLOOD CHOLESTEROL
     Dosage: 100, SINCE FOUR YEARS
  8. VALSARTAN. [Concomitant]
     Active Substance: VALSARTAN
     Indication: HYPERTENSION
     Dosage: 160, OVER TEN YEARS OF THERAPY

REACTIONS (3)
  - Accident [Unknown]
  - Contusion [Unknown]
  - Deep vein thrombosis [Unknown]

NARRATIVE: CASE EVENT DATE: 20170131
